FAERS Safety Report 5112762-9 (Version None)
Quarter: 2006Q3

REPORT INFORMATION
  Report Type: 
  Country: None (occurrence: None)
  Receive Date: 20060920
  Receipt Date: 20060920
  Transmission Date: 20061208
  Serious: Yes (Life-Threatening)
  Sender: FDA-Public Use
  Company Number: None

PATIENT
  Age: 37 Year
  Sex: Female
  Weight: 51 kg

DRUGS (4)
  1. RITUXIMAB  10 MG /ML [Suspect]
     Indication: HAEMOLYTIC ANAEMIA
     Dosage: 550 MG IV
     Route: 042
     Dates: start: 20050211
  2. RITUXIMAB  10 MG /ML [Suspect]
     Indication: SYSTEMIC LUPUS ERYTHEMATOSUS
     Dosage: 550 MG IV
     Route: 042
     Dates: start: 20050211
  3. RITUXIMAB  10 MG /ML [Suspect]
     Indication: THROMBOCYTOPENIA
     Dosage: 550 MG IV
     Route: 042
     Dates: start: 20050211
  4. CYTOXAN [Concomitant]

REACTIONS (5)
  - CARDIAC DISORDER [None]
  - CHEST PAIN [None]
  - ELECTROCARDIOGRAM T WAVE INVERSION [None]
  - INFUSION RELATED REACTION [None]
  - TROPONIN INCREASED [None]
